FAERS Safety Report 5069790-1 (Version None)
Quarter: 2006Q3

REPORT INFORMATION
  Report Type: 
  Country: None (occurrence: None)
  Receive Date: 20060803
  Receipt Date: 20060728
  Transmission Date: 20061208
  Serious: Yes (Life-Threatening)
  Sender: FDA-Public Use
  Company Number: JP-JPN-A200602871

PATIENT
  Age: 49 Year
  Sex: Male

DRUGS (6)
  1. EPIVIR [Suspect]
     Indication: HIV INFECTION
     Dosage: 150MG TWICE PER DAY
     Route: 048
     Dates: start: 20050307
  2. STOCRIN [Suspect]
     Indication: HIV INFECTION
     Route: 048
     Dates: start: 20050411
  3. VIREAD [Suspect]
     Indication: HIV INFECTION
     Route: 048
     Dates: start: 20050307
  4. MONILAC [Concomitant]
     Dosage: 10ML THREE TIMES PER DAY
     Route: 048
     Dates: start: 20050401, end: 20050424
  5. RECOMBINATE [Concomitant]
     Route: 042
     Dates: start: 20050401
  6. HISHIPHAGEN C [Concomitant]
     Indication: CHRONIC HEPATITIS
     Dosage: 60ML TWO TIMES PER WEEK
     Route: 042
     Dates: start: 20050401

REACTIONS (4)
  - CEREBELLAR HAEMORRHAGE [None]
  - COMPRESSION FRACTURE [None]
  - HEADACHE [None]
  - NAUSEA [None]
